FAERS Safety Report 9455328 (Version 1)
Quarter: 2013Q3

REPORT INFORMATION
  Report Type: Spontaneous
  Country: IT (occurrence: IT)
  Receive Date: 20130813
  Receipt Date: 20130813
  Transmission Date: 20140515
  Serious: Yes (Life-Threatening)
  Sender: FDA-Public Use
  Company Number: IT-ACCORD-018958

PATIENT
  Age: 73 Year
  Sex: Female

DRUGS (3)
  1. DOCETAXEL [Suspect]
     Indication: PRODUCT USED FOR UNKNOWN INDICATION
     Dosage: 125 MG: 80 MG + 3 VIALS 20 MG
     Route: 042
     Dates: start: 20130729, end: 20130729
  2. OMEPRAZOLE [Concomitant]
     Dosage: PERIOD: 1 MONTH
     Route: 048
  3. OLMESARTAN MEDOXOMIL [Concomitant]
     Dosage: PERIOD: 1 MONTH
     Route: 048

REACTIONS (4)
  - Bradycardia [Recovered/Resolved]
  - Cold sweat [Recovered/Resolved]
  - Depressed level of consciousness [Recovered/Resolved]
  - Hot flush [Recovered/Resolved]
